FAERS Safety Report 13739609 (Version 1)
Quarter: 2017Q3

REPORT INFORMATION
  Report Type: Spontaneous
  Country: TR (occurrence: TR)
  Receive Date: 20170710
  Receipt Date: 20170710
  Transmission Date: 20171127
  Serious: Yes (Hospitalization)
  Sender: FDA-Public Use
  Company Number: TR-ASTRAZENECA-2017SE70264

PATIENT
  Age: 50 Year
  Sex: Female

DRUGS (1)
  1. FORZIGA [Suspect]
     Active Substance: DAPAGLIFLOZIN
     Indication: BLOOD INSULIN ABNORMAL
     Route: 048

REACTIONS (1)
  - Hypercalcaemia [Unknown]
